FAERS Safety Report 7180156-0 (Version None)
Quarter: 2010Q4

REPORT INFORMATION
  Report Type: 
  Country: None (occurrence: None)
  Receive Date: 20101221
  Receipt Date: 20101213
  Transmission Date: 20110411
  Serious: No
  Sender: FDA-Public Use
  Company Number: US-PFIZER INC-2010170412

PATIENT
  Sex: Female

DRUGS (2)
  1. PRISTIQ [Suspect]
     Indication: ANXIETY
     Dosage: 50 MG, 1X/DAY
     Route: 048
     Dates: start: 20090101
  2. PREMARIN [Concomitant]
     Indication: MENOPAUSAL SYMPTOMS
     Dosage: 0.625 MG, UNK
     Route: 048

REACTIONS (3)
  - DIZZINESS [None]
  - IMPAIRED WORK ABILITY [None]
  - NAUSEA [None]
